FAERS Safety Report 24530846 (Version 2)
Quarter: 2024Q4

REPORT INFORMATION
  Report Type: Spontaneous
  Country: US (occurrence: US)
  Receive Date: 20241021
  Receipt Date: 20241119
  Transmission Date: 20250115
  Serious: Yes (Hospitalization)
  Sender: MERCK
  Company Number: US-009507513-2410USA006438

PATIENT
  Age: 60 Year
  Sex: Female

DRUGS (2)
  1. KEYTRUDA [Suspect]
     Active Substance: PEMBROLIZUMAB
     Indication: Renal cell carcinoma
     Dosage: UNK , EVERY 6 WEEKS
     Route: 042
     Dates: start: 20231130
  2. BUPROPION [Concomitant]
     Active Substance: BUPROPION
     Indication: Stress
     Dosage: 300 MILLIGRAM

REACTIONS (9)
  - Nausea [Not Recovered/Not Resolved]
  - Pyrexia [Not Recovered/Not Resolved]
  - Dyspnoea [Recovering/Resolving]
  - Diarrhoea [Not Recovered/Not Resolved]
  - Feeling abnormal [Unknown]
  - Ear pain [Unknown]
  - Oropharyngeal pain [Unknown]
  - Incorrect product administration duration [Unknown]
  - Wrong technique in product usage process [Unknown]

NARRATIVE: CASE EVENT DATE: 20240922
